FAERS Safety Report 4851244-6 (Version None)
Quarter: 2005Q4

REPORT INFORMATION
  Report Type: 
  Country: None (occurrence: None)
  Receive Date: 20051208
  Receipt Date: 20051128
  Transmission Date: 20060501
  Serious: Yes (Hospitalization)
  Sender: FDA-Public Use
  Company Number: 2005BI014009

PATIENT
  Age: 52 Year
  Sex: Female

DRUGS (1)
  1. AVONEX [Suspect]
     Indication: MULTIPLE SCLEROSIS
     Dosage: 30 UG; QW;IM
     Route: 030
     Dates: start: 20030405

REACTIONS (19)
  - AORTIC DILATATION [None]
  - AORTIC VALVE SCLEROSIS [None]
  - CORONARY ARTERY DISEASE [None]
  - CORONARY ARTERY OCCLUSION [None]
  - DIASTOLIC DYSFUNCTION [None]
  - DYSPNOEA [None]
  - EAR PAIN [None]
  - HYPERTENSION [None]
  - MITRAL VALVE CALCIFICATION [None]
  - MITRAL VALVE DISEASE [None]
  - MITRAL VALVE INCOMPETENCE [None]
  - MYOCARDIAL INFARCTION [None]
  - MYOCARDIAL ISCHAEMIA [None]
  - OEDEMA PERIPHERAL [None]
  - PULMONARY VALVE INCOMPETENCE [None]
  - SNORING [None]
  - TRICUSPID VALVE INCOMPETENCE [None]
  - UTERINE HAEMORRHAGE [None]
  - VENTRICULAR HYPERTROPHY [None]
